FAERS Safety Report 17514463 (Version 1)
Quarter: 2020Q1

REPORT INFORMATION
  Report Type: Report from Study
  Country: CO (occurrence: CO)
  Receive Date: 20200307
  Receipt Date: 20200307
  Transmission Date: 20200409
  Serious: Yes (Other)
  Sender: FDA-Public Use
  Company Number: CO-ROCHE-2465924

PATIENT
  Sex: Female

DRUGS (1)
  1. RITUXIMAB. [Suspect]
     Active Substance: RITUXIMAB
     Indication: PRODUCT USED FOR UNKNOWN INDICATION
     Route: 065

REACTIONS (9)
  - Angina pectoris [Unknown]
  - Arthritis [Not Recovered/Not Resolved]
  - Bone pain [Unknown]
  - Ill-defined disorder [Unknown]
  - Musculoskeletal pain [Unknown]
  - Gait inability [Unknown]
  - Axillary pain [Unknown]
  - Anxiety [Unknown]
  - Breast cancer [Unknown]
